FAERS Safety Report 6847497-5 (Version None)
Quarter: 2010Q3

REPORT INFORMATION
  Report Type: 
  Country: None (occurrence: None)
  Receive Date: 20100714
  Receipt Date: 20100628
  Transmission Date: 20110219
  Serious: Yes (Other)
  Sender: FDA-Public Use
  Company Number: LEO-2010-00438

PATIENT
  Age: 51 Year
  Sex: Female

DRUGS (1)
  1. CALCIPOTRIENE [Suspect]
     Indication: PSORIASIS
     Dosage: 2 IN 1 D, TOPICAL
     Route: 061

REACTIONS (2)
  - DERMATITIS BULLOUS [None]
  - PHOTOSENSITIVITY REACTION [None]
